FAERS Safety Report 23021237 (Version 4)
Quarter: 2023Q4

REPORT INFORMATION
  Report Type: Report from Study
  Country: US (occurrence: US)
  Receive Date: 20231003
  Receipt Date: 20231128
  Transmission Date: 20240109
  Serious: Yes (Other)
  Sender: FDA-Public Use
  Company Number: US-002147023-NVSC2023US212008

PATIENT
  Age: 75 Year
  Sex: Female
  Weight: 54.78 kg

DRUGS (6)
  1. NAPORAFENIB [Suspect]
     Active Substance: NAPORAFENIB
     Indication: Colorectal cancer
     Dosage: 200 MG, BID
     Route: 048
     Dates: start: 20230828, end: 20230923
  2. NAPORAFENIB [Suspect]
     Active Substance: NAPORAFENIB
     Dosage: 300 MG, TOTAL DAILY DOSE
     Route: 048
     Dates: start: 20231009
  3. MEKINIST [Suspect]
     Active Substance: TRAMETINIB DIMETHYL SULFOXIDE
     Indication: Colorectal cancer
     Dosage: 1 MG, QD
     Route: 048
     Dates: start: 20230828, end: 20230923
  4. MEKINIST [Suspect]
     Active Substance: TRAMETINIB DIMETHYL SULFOXIDE
     Dosage: 0.5 MG, QD
     Route: 048
     Dates: start: 20231009
  5. CLINDAMYCIN PHOSPHATE [Concomitant]
     Active Substance: CLINDAMYCIN PHOSPHATE
     Indication: Product used for unknown indication
     Dosage: UNK
     Route: 065
     Dates: start: 20230824
  6. DOXYCYCLINE HYCLATE [Concomitant]
     Active Substance: DOXYCYCLINE HYCLATE
     Indication: Product used for unknown indication
     Dosage: UNK
     Route: 065
     Dates: start: 20230824

REACTIONS (1)
  - Photosensitivity reaction [Recovered/Resolved with Sequelae]

NARRATIVE: CASE EVENT DATE: 20230915
